FAERS Safety Report 5891578-X (Version None)
Quarter: 2008Q3

REPORT INFORMATION
  Report Type: 
  Country: None (occurrence: None)
  Receive Date: 20080922
  Receipt Date: 20080911
  Transmission Date: 20090109
  Serious: Yes (Hospitalization)
  Sender: FDA-Public Use
  Company Number: JP-ROCHE-529198

PATIENT
  Sex: Female
  Weight: 40 kg

DRUGS (6)
  1. ROCEPHIN [Suspect]
     Indication: DIVERTICULITIS
     Route: 041
     Dates: start: 20070316, end: 20070320
  2. PANALDINE [Concomitant]
     Route: 048
  3. DIOVAN [Concomitant]
     Route: 048
     Dates: end: 20080323
  4. NORVASC [Concomitant]
     Route: 048
  5. LOXONIN [Concomitant]
     Route: 048
     Dates: start: 20070317, end: 20070318
  6. VOLTAREN [Concomitant]
     Dosage: FORMULATION: RECTAL SUPPOSITORY
     Route: 054
     Dates: start: 20070317, end: 20070320

REACTIONS (2)
  - BILE DUCT STONE [None]
  - CHOLECYSTITIS [None]
